FAERS Safety Report 22298536 (Version 1)
Quarter: 2023Q2

REPORT INFORMATION
  Report Type: Spontaneous
  Country: US (occurrence: US)
  Receive Date: 20230509
  Receipt Date: 20230509
  Transmission Date: 20230721
  Serious: Yes (Other)
  Sender: FDA-Public Use
  Company Number: US-PFIZER INC-PV202300081581

PATIENT
  Age: 58 Year
  Sex: Female

DRUGS (1)
  1. XELJANZ XR [Suspect]
     Active Substance: TOFACITINIB CITRATE
     Indication: Rheumatoid arthritis
     Dosage: 11 MG, DAILY
     Route: 048
     Dates: start: 2022

REACTIONS (6)
  - Rheumatoid arthritis [Unknown]
  - Arthropathy [Unknown]
  - Inflammation [Unknown]
  - Pain [Unknown]
  - Sensitivity to weather change [Unknown]
  - Product dose omission in error [Unknown]
